FAERS Safety Report 9205269 (Version 6)
Quarter: 2014Q1

REPORT INFORMATION
  Report Type: Report from Study
  Country: US (occurrence: US)
  Receive Date: 20130402
  Receipt Date: 20140218
  Transmission Date: 20141002
  Serious: Yes (Life-Threatening)
  Sender: FDA-Public Use
  Company Number: US-B.I. PHARMACEUTICALS,INC./RIDGEFIELD-2013-BI-08990BI

PATIENT
  Age: 75 Year
  Sex: Male
  Weight: 65.1 kg

DRUGS (3)
  1. PRADAXA [Suspect]
     Indication: ATRIAL FIBRILLATION
     Dosage: 150 MG
     Route: 048
     Dates: start: 20121219, end: 20121225
  2. PRADAXA [Suspect]
     Dosage: 75 MG
     Route: 048
     Dates: start: 20121219, end: 20121225
  3. ASPIRIN [Suspect]
     Indication: CORONARY ARTERY DISEASE
     Dosage: 81 MG
     Route: 048
     Dates: start: 20121203, end: 20121225

REACTIONS (1)
  - Gastric ulcer haemorrhage [Recovered/Resolved]
